FAERS Safety Report 17474564 (Version 2)
Quarter: 2021Q1

REPORT INFORMATION
  Report Type: Report from Study
  Country: GB (occurrence: GB)
  Receive Date: 20200228
  Receipt Date: 20210304
  Transmission Date: 20210419
  Serious: Yes (Other)
  Sender: FDA-Public Use
  Company Number: GB-JNJFOC-20190741689

PATIENT
  Sex: Female

DRUGS (6)
  1. THYROXINE [Concomitant]
     Active Substance: LEVOTHYROXINE
     Route: 065
  2. AMLODIPINE [Concomitant]
     Active Substance: AMLODIPINE BESYLATE
     Route: 065
  3. STELARA [Suspect]
     Active Substance: USTEKINUMAB
     Indication: PSORIASIS
     Route: 058
     Dates: start: 2018
  4. ATORVASTATIN [Concomitant]
     Active Substance: ATORVASTATIN
     Route: 065
  5. STELARA [Suspect]
     Active Substance: USTEKINUMAB
  6. INSULIN                            /01223401/ [Concomitant]
     Active Substance: INSULIN PORK\INSULIN PURIFIED PORK
     Route: 065

REACTIONS (1)
  - Lower respiratory tract infection [Unknown]
